FAERS Safety Report 15423391 (Version 1)
Quarter: 2018Q3

REPORT INFORMATION
  Report Type: Spontaneous
  Country: US (occurrence: US)
  Receive Date: 20180925
  Receipt Date: 20180925
  Transmission Date: 20181010
  Serious: No
  Sender: FDA-Public Use
  Company Number: PHEH2018US039376

PATIENT
  Age: 71 Year
  Sex: Female

DRUGS (1)
  1. AMOXICILLIN, CLAVULANATE [Suspect]
     Active Substance: AMOXICILLIN\CLAVULANATE POTASSIUM
     Indication: PRODUCT USED FOR UNKNOWN INDICATION
     Dosage: 500 MG, BID
     Route: 065
     Dates: start: 20180611, end: 20180617

REACTIONS (5)
  - Rash macular [Unknown]
  - Erythema [Unknown]
  - Burning sensation [Unknown]
  - Pruritus [Unknown]
  - Skin disorder [Unknown]

NARRATIVE: CASE EVENT DATE: 20180805
